FAERS Safety Report 6414228-2 (Version None)
Quarter: 2009Q4

REPORT INFORMATION
  Report Type: 
  Country: None (occurrence: None)
  Receive Date: 20091026
  Receipt Date: 20091021
  Transmission Date: 20100525
  Serious: Yes (Death)
  Sender: FDA-Public Use
  Company Number: CHPA2009US20716

PATIENT
  Sex: Female

DRUGS (3)
  1. BUFFERIN REGULAR STRENGTH (NCH) [Suspect]
     Indication: HEADACHE
     Dosage: 650 MG, BID
     Route: 048
  2. BUFFERIN REGULAR STRENGTH (NCH) [Suspect]
     Indication: ARTHRALGIA
  3. CARDIAC THERAPY [Suspect]
     Dosage: 0.5 DF, UNK

REACTIONS (1)
  - DEATH [None]
